FAERS Safety Report 8960942 (Version 1)
Quarter: 2012Q4

REPORT INFORMATION
  Report Type: 
  Country: US (occurrence: US)
  Receive Date: 20121212
  Receipt Date: 20121212
  Transmission Date: 20130627
  Serious: Yes (Other)
  Sender: FDA-Public Use
  Company Number: US-PFIZER INC-2012313700

PATIENT
  Age: 80 Year
  Sex: Male
  Weight: 83.9 kg

DRUGS (5)
  1. LYRICA [Suspect]
     Indication: FOOT DISCOMFORT
     Dosage: 50 mg, 2x/day
     Route: 048
     Dates: start: 201211
  2. LYRICA [Suspect]
     Indication: NUMBNESS IN FEET
  3. METOPROLOL [Concomitant]
     Dosage: UNK
  4. ASPIRIN [Concomitant]
     Dosage: UNK
  5. PRILOSEC [Concomitant]
     Dosage: UNK

REACTIONS (4)
  - Conjunctivitis infective [Unknown]
  - Balance disorder [Unknown]
  - Gait disturbance [Unknown]
  - Weight increased [Unknown]
